FAERS Safety Report 4950093-8 (Version None)
Quarter: 2006Q1

REPORT INFORMATION
  Report Type: 
  Country: None (occurrence: None)
  Receive Date: 20060320
  Receipt Date: 20060320
  Transmission Date: 20060701
  Serious: Yes (Life-Threatening)
  Sender: FDA-Public Use
  Company Number: None

PATIENT
  Sex: Female
  Weight: 106.5953 kg

DRUGS (2)
  1. ALBUTEROL SULFATE [Suspect]
     Indication: ASTHMA
     Dosage: 2.5 MG/3ML  4 TIMES A DAY  INHAL
     Route: 055
     Dates: start: 20060101, end: 20060317
  2. ALBUTEROL SULFATE [Suspect]
     Indication: CHRONIC OBSTRUCTIVE PULMONARY DISEASE
     Dosage: 2.5 MG/3ML  4 TIMES A DAY  INHAL
     Route: 055
     Dates: start: 20060101, end: 20060317

REACTIONS (2)
  - DRUG INEFFECTIVE [None]
  - PHARMACEUTICAL PRODUCT COMPLAINT [None]
